FAERS Safety Report 18062677 (Version 1)
Quarter: 2020Q3

REPORT INFORMATION
  Report Type: Spontaneous
  Country: CN (occurrence: CN)
  Receive Date: 20200724
  Receipt Date: 20200724
  Transmission Date: 20201103
  Serious: Yes (Other)
  Sender: FDA-Public Use
  Company Number: CN-UCBSA-2020028603

PATIENT
  Sex: Male

DRUGS (2)
  1. KEPPRA [Suspect]
     Active Substance: LEVETIRACETAM
     Indication: OFF LABEL USE
     Dosage: 0.25 GRAM (HALF PIECE OF 0.5G TABLET), 2X/DAY (BID)
     Dates: start: 2020
  2. KEPPRA [Suspect]
     Active Substance: LEVETIRACETAM
     Indication: SEIZURE PROPHYLAXIS
     Dosage: 0.5 GRAM, 2X/DAY (BID)
     Dates: start: 201912, end: 2020

REACTIONS (3)
  - Face oedema [Recovering/Resolving]
  - Pruritus [Recovered/Resolved]
  - Off label use [Unknown]
